FAERS Safety Report 5670675-8 (Version None)
Quarter: 2008Q1

REPORT INFORMATION
  Report Type: 
  Country: None (occurrence: None)
  Receive Date: 20080318
  Receipt Date: 20080304
  Transmission Date: 20080703
  Serious: Yes (Hospitalization)
  Sender: FDA-Public Use
  Company Number: US-AMGEN-US268059

PATIENT
  Age: 84 Year
  Sex: Female

DRUGS (8)
  1. EPOGEN [Suspect]
     Indication: DIALYSIS
     Route: 042
     Dates: start: 20051222
  2. AMIODARONE HCL [Concomitant]
  3. LEVOXYL [Concomitant]
  4. WARFARIN SODIUM [Concomitant]
  5. METOPROLOL TARTRATE [Concomitant]
  6. NEPHRO-CAPS [Concomitant]
  7. PHOSLO [Concomitant]
  8. ASPIRIN [Concomitant]

REACTIONS (1)
  - ANAEMIA [None]
